FAERS Safety Report 5874926-6 (Version None)
Quarter: 2008Q3

REPORT INFORMATION
  Report Type: 
  Country: None (occurrence: None)
  Receive Date: 20080909
  Receipt Date: 20080829
  Transmission Date: 20090109
  Serious: Yes (Other)
  Sender: FDA-Public Use
  Company Number: US-JNJFOC-20080900101

PATIENT
  Sex: Male
  Weight: 74.84 kg

DRUGS (1)
  1. ULTRAM [Suspect]
     Indication: PAIN
     Dosage: TAKES 30-45 TABLETS A DAY
     Route: 048

REACTIONS (7)
  - DEPENDENCE [None]
  - DEPRESSION [None]
  - HOMICIDAL IDEATION [None]
  - HYPERSOMNIA [None]
  - NARCOLEPSY [None]
  - OVERDOSE [None]
  - SUICIDAL IDEATION [None]
